FAERS Safety Report 23712322 (Version 3)
Quarter: 2024Q4

REPORT INFORMATION
  Report Type: Spontaneous
  Country: US (occurrence: US)
  Receive Date: 20240405
  Receipt Date: 20241008
  Transmission Date: 20250114
  Serious: Yes (Hospitalization, Other)
  Sender: TORRENT
  Company Number: US-TORRENT-00013495

PATIENT
  Age: 84 Year
  Sex: Female

DRUGS (2)
  1. ITRACONAZOLE [Suspect]
     Active Substance: ITRACONAZOLE
     Indication: Disseminated blastomycosis
     Route: 048
  2. PREDNISONE [Concomitant]
     Active Substance: PREDNISONE
     Indication: Product used for unknown indication
     Dosage: LOW DOSE
     Route: 065

REACTIONS (4)
  - Left ventricular failure [Recovered/Resolved]
  - Pleural effusion [Recovered/Resolved]
  - Pulmonary congestion [Recovered/Resolved]
  - Condition aggravated [Recovered/Resolved]
